FAERS Safety Report 9061804 (Version 1)
Quarter: 2013Q1

REPORT INFORMATION
  Report Type: Spontaneous
  Country: US (occurrence: None)
  Receive Date: 20130118
  Receipt Date: 20130118
  Transmission Date: 20140127
  Serious: Yes (Other)
  Sender: FDA-Public Use
  Company Number: US-1195815

PATIENT
  Age: 68 Year
  Sex: Male

DRUGS (2)
  1. DUREZOL [Suspect]
     Indication: POSTOPERATIVE CARE
     Dosage: (1 GTT OD)
     Route: 047
     Dates: start: 20121206, end: 20121214
  2. BESIVANCE [Concomitant]

REACTIONS (1)
  - Intraocular pressure increased [None]
